FAERS Safety Report 6080314-2 (Version None)
Quarter: 2009Q1

REPORT INFORMATION
  Report Type: 
  Country: None (occurrence: None)
  Receive Date: 20090217
  Receipt Date: 20090205
  Transmission Date: 20090719
  Serious: Yes (Disabling)
  Sender: FDA-Public Use
  Company Number: AU-PFIZER INC-2008098746

PATIENT

DRUGS (10)
  1. CHAMPIX [Suspect]
     Indication: SMOKING CESSATION THERAPY
     Dosage: 1 MG, 2X/DAY
     Route: 048
     Dates: start: 20080622, end: 20080821
  2. DIABEX S.R. [Concomitant]
     Route: 048
  3. DIAMICRON [Concomitant]
     Route: 048
  4. MIXTARD HUMAN 70/30 [Concomitant]
     Route: 058
  5. AVANDIA [Concomitant]
     Route: 048
  6. INDAPAMIDE [Concomitant]
     Route: 048
  7. ADALAT [Concomitant]
     Route: 048
  8. RAMIPRIL [Concomitant]
     Route: 048
     Dates: start: 20080219
  9. ACETYLSALICYLIC ACID [Concomitant]
     Route: 048
  10. TRAMADOL HCL [Concomitant]
     Route: 048

REACTIONS (6)
  - ABNORMAL BEHAVIOUR [None]
  - AGGRESSION [None]
  - BLOOD GLUCOSE FLUCTUATION [None]
  - IRRITABILITY [None]
  - SLEEP DISORDER [None]
  - TREATMENT NONCOMPLIANCE [None]
